FAERS Safety Report 14461957 (Version 18)
Quarter: 2019Q3

REPORT INFORMATION
  Report Type: Report from Study
  Country: GB (occurrence: GB)
  Receive Date: 20180130
  Receipt Date: 20190701
  Transmission Date: 20191004
  Serious: Yes (Hospitalization)
  Sender: FDA-Public Use
  Company Number: GB-009507513-1801GBR004977

PATIENT
  Age: 69 Year
  Sex: Male
  Weight: 97.7 kg

DRUGS (10)
  1. ERTUGLIFLOZIN [Suspect]
     Active Substance: ERTUGLIFLOZIN
     Indication: TYPE 2 DIABETES MELLITUS
     Dosage: 5 MILLIGRAM
     Route: 048
     Dates: start: 20160916, end: 20180102
  2. HUMULIN NOS [Concomitant]
     Active Substance: INSULIN HUMAN
     Indication: TYPE 2 DIABETES MELLITUS
     Dosage: 20 INTERNATIONAL UNIT, QD
     Route: 058
     Dates: start: 20161209, end: 20180108
  3. ATORVASTATIN [Concomitant]
     Active Substance: ATORVASTATIN
     Indication: ANGINA PECTORIS
     Dosage: 20 MILLIGRAM, QD
     Route: 048
     Dates: start: 200107
  4. METFORMIN [Concomitant]
     Active Substance: METFORMIN HYDROCHLORIDE
     Indication: TYPE 2 DIABETES MELLITUS
     Dosage: 1 GRAM, BID
     Route: 048
     Dates: start: 199907
  5. LOSARTAN. [Concomitant]
     Active Substance: LOSARTAN
     Indication: HYPERTENSION
     Dosage: 100 MILLIGRAM, QD
     Route: 048
     Dates: start: 199207
  6. SPIRONOLACTONE. [Concomitant]
     Active Substance: SPIRONOLACTONE
     Indication: ANGINA PECTORIS
     Dosage: 25 MILLIGRAM, QD
     Route: 048
     Dates: start: 200107
  7. SAVLON (CETRIMIDE (+) CHLORHEXIDINE GLUCONATE) [Concomitant]
     Indication: PRURITUS GENITAL
     Dosage: 1 APPLICATION, QD
     Route: 003
     Dates: start: 20161012
  8. ASPIRIN. [Concomitant]
     Active Substance: ASPIRIN
     Indication: ANGINA PECTORIS
     Dosage: 75 MILLIGRAM, QD
     Route: 048
     Dates: start: 200107, end: 20180108
  9. BISOPROLOL [Concomitant]
     Active Substance: BISOPROLOL
     Indication: ANGINA PECTORIS
     Dosage: 10 MILLIGRAM, QD
     Route: 048
     Dates: start: 200107
  10. ERTUGLIFLOZIN [Suspect]
     Active Substance: ERTUGLIFLOZIN
     Dosage: 5 MILLIGRAM
     Route: 048
     Dates: start: 20180110, end: 20190602

REACTIONS (3)
  - Diabetic ketoacidosis [Recovered/Resolved]
  - Pneumonia [Recovered/Resolved]
  - Diabetic ketoacidosis [Recovered/Resolved]

NARRATIVE: CASE EVENT DATE: 20180103
